FAERS Safety Report 15674833 (Version 1)
Quarter: 2018Q4

REPORT INFORMATION
  Report Type: Spontaneous
  Country: BR (occurrence: BR)
  Receive Date: 20181130
  Receipt Date: 20181130
  Transmission Date: 20190205
  Serious: Yes (Other)
  Sender: FDA-Public Use
  Company Number: BR-AMGEN-BRASP2018136885

PATIENT
  Age: 62 Year
  Sex: Female
  Weight: 81.7 kg

DRUGS (9)
  1. FAULDCARBO [Concomitant]
     Active Substance: CARBOPLATIN
     Indication: BREAST CANCER
     Dosage: 521 MG, UNK
     Dates: start: 20180924
  2. ALLEGRA [Suspect]
     Active Substance: FEXOFENADINE HYDROCHLORIDE
     Indication: PHARYNGITIS
  3. ALLEGRA [Suspect]
     Active Substance: FEXOFENADINE HYDROCHLORIDE
     Indication: DYSPHONIA
     Dosage: 180 MG, UNK
     Route: 065
     Dates: start: 201809
  4. PERJETA [Concomitant]
     Active Substance: PERTUZUMAB
     Indication: BREAST CANCER
     Dosage: 840 MG, ATTACK DOSE
     Dates: start: 20180924
  5. HERCEPTIN [Concomitant]
     Active Substance: TRASTUZUMAB
     Indication: BREAST CANCER
     Dosage: 656 MG, ATTACK DOSE
     Dates: start: 20180924
  6. NEULASTIM [Suspect]
     Active Substance: PEGFILGRASTIM
     Indication: PROPHYLAXIS
     Dosage: 6 MG, Q3WK
     Route: 058
     Dates: start: 20180925, end: 2018
  7. NEULASTIM [Suspect]
     Active Substance: PEGFILGRASTIM
     Dosage: 6 MG, Q3WK
     Route: 058
     Dates: start: 2018
  8. ALLEGRA [Suspect]
     Active Substance: FEXOFENADINE HYDROCHLORIDE
     Indication: RESPIRATORY FATIGUE
  9. TAXOTERE [Concomitant]
     Active Substance: DOCETAXEL
     Indication: BREAST CANCER
     Dosage: 120 MG, UNK
     Dates: start: 20180924

REACTIONS (4)
  - Pharyngitis [Recovered/Resolved]
  - Respiratory fatigue [Recovered/Resolved]
  - Dysphonia [Recovered/Resolved]
  - Lung disorder [Unknown]

NARRATIVE: CASE EVENT DATE: 2018
